FAERS Safety Report 13754235 (Version 1)
Quarter: 2017Q3

REPORT INFORMATION
  Report Type: Spontaneous
  Country: SE (occurrence: SE)
  Receive Date: 20170714
  Receipt Date: 20170714
  Transmission Date: 20171127
  Serious: Yes (Hospitalization)
  Sender: FDA-Public Use
  Company Number: SE-TEVA-785272ISR

PATIENT
  Age: 64 Year
  Sex: Female

DRUGS (1)
  1. VINORELBINE [Suspect]
     Active Substance: VINORELBINE\VINORELBINE TARTRATE
     Route: 042

REACTIONS (2)
  - Agranulocytosis [Recovered/Resolved]
  - Anaemia [Recovered/Resolved]
